FAERS Safety Report 7183708-7 (Version None)
Quarter: 2010Q4

REPORT INFORMATION
  Report Type: 
  Country: None (occurrence: None)
  Receive Date: 20101220
  Receipt Date: 20101220
  Transmission Date: 20110411
  Serious: Yes (Hospitalization)
  Sender: FDA-Public Use
  Company Number: None

PATIENT
  Age: 75 Year
  Sex: Female
  Weight: 66 kg

DRUGS (18)
  1. LYRICA [Suspect]
     Indication: BACK PAIN
     Dosage: 300 MG TID PO CHRONIC W/ RECENT INCREASE
     Route: 048
  2. LYRICA [Suspect]
     Indication: NEUROPATHY PERIPHERAL
     Dosage: 300 MG TID PO CHRONIC W/ RECENT INCREASE
     Route: 048
  3. VICODIN ES [Suspect]
     Indication: NEUROPATHY PERIPHERAL
     Dosage: 7.5 TWO QHS CHRONIC PAIN TOOTH PAIN
  4. VICODIN ES [Suspect]
     Indication: PAIN
     Dosage: 7.5 TWO QHS CHRONIC PAIN TOOTH PAIN
  5. LASIX [Concomitant]
  6. COREG [Concomitant]
  7. ZOCOR [Concomitant]
  8. CYMBALTA [Concomitant]
  9. ZETIA [Concomitant]
  10. LISINOPRIL [Concomitant]
  11. METFORMIN [Concomitant]
  12. AMARYL [Concomitant]
  13. CALTRATE [Concomitant]
  14. GLIPIZIDE [Concomitant]
  15. COLACE [Concomitant]
  16. NASONEX [Concomitant]
  17. PENICILLIN V POTASSIUM [Concomitant]
  18. BENTYL [Concomitant]

REACTIONS (9)
  - ASTHENIA [None]
  - DELIRIUM [None]
  - DIZZINESS [None]
  - DRUG TOXICITY [None]
  - FAILURE TO THRIVE [None]
  - FALL [None]
  - HYPOGLYCAEMIA [None]
  - OVERDOSE [None]
  - URINARY TRACT INFECTION [None]
